FAERS Safety Report 17407231 (Version 1)
Quarter: 2020Q1

REPORT INFORMATION
  Report Type: Spontaneous
  Country: US (occurrence: US)
  Receive Date: 20200211
  Receipt Date: 20200211
  Transmission Date: 20200409
  Serious: Yes (Other)
  Sender: FDA-Public Use
  Company Number: None

PATIENT
  Sex: Female

DRUGS (3)
  1. BUPRENORPHINE-NALOXONE 8-2 MG TABLET [Concomitant]
     Dates: start: 20180425, end: 20181023
  2. BUPRENORPHINE-NALOXONE 8-2 MG FILMS [Concomitant]
     Dates: end: 20200211
  3. BUPRENORPHINE/NALAXONE TABLETS [Suspect]
     Active Substance: BUPRENORPHINE HYDROCHLORIDE\NALOXONE HYDROCHLORIDE
     Indication: DRUG DEPENDENCE
     Route: 048
     Dates: end: 20200211

REACTIONS (2)
  - Headache [None]
  - Nausea [None]

NARRATIVE: CASE EVENT DATE: 20200211
